FAERS Safety Report 20140175 (Version 1)
Quarter: 2021Q4

REPORT INFORMATION
  Report Type: Spontaneous
  Country: US (occurrence: US)
  Receive Date: 20211202
  Receipt Date: 20211202
  Transmission Date: 20220303
  Serious: Yes (Hospitalization, Other)
  Sender: FDA-Public Use
  Company Number: US-SA-2021SA400235

PATIENT
  Age: 84 Year
  Sex: Male

DRUGS (1)
  1. CLOPIDOGREL BISULFATE [Suspect]
     Active Substance: CLOPIDOGREL BISULFATE
     Indication: Coronary artery disease

REACTIONS (4)
  - Urinary retention [Recovered/Resolved]
  - Rectal haemorrhage [Recovered/Resolved]
  - Proctalgia [Recovered/Resolved]
  - Haematochezia [Recovered/Resolved]
